FAERS Safety Report 14950100 (Version 1)
Quarter: 2018Q2

REPORT INFORMATION
  Report Type: Spontaneous
  Country: GB (occurrence: GB)
  Receive Date: 20180530
  Receipt Date: 20180530
  Transmission Date: 20180711
  Serious: Yes (Other)
  Sender: FDA-Public Use
  Company Number: GB-TEVA-2018-GB-899252

PATIENT
  Age: 22 Year
  Sex: Female
  Weight: 111.12 kg

DRUGS (1)
  1. MIRTAZAPINE. [Suspect]
     Active Substance: MIRTAZAPINE
     Indication: DEPRESSION
     Route: 048

REACTIONS (4)
  - Panic reaction [Recovered/Resolved]
  - Anger [Recovered/Resolved]
  - Nightmare [Recovered/Resolved]
  - Suicidal ideation [Unknown]
